FAERS Safety Report 9707006 (Version 1)
Quarter: 2013Q4

REPORT INFORMATION
  Report Type: Spontaneous
  Country: US (occurrence: US)
  Receive Date: 20131125
  Receipt Date: 20131125
  Transmission Date: 20140711
  Serious: No
  Sender: FDA-Public Use
  Company Number: US-PFIZER INC-2013332031

PATIENT
  Age: 55 Year
  Sex: Female
  Weight: 78.23 kg

DRUGS (7)
  1. LYRICA [Suspect]
     Dosage: 75 MG, 3X/DAY
     Route: 048
  2. FENTANYL [Concomitant]
     Dosage: 50MCG/72 HOUR
  3. NORCO [Concomitant]
     Dosage: 5/500 MG/MG, 3X/DAY
  4. TEMAZEPAM [Concomitant]
     Dosage: 15 MG, 1X/DAY (AT NIGHT)
  5. WELLBUTRIN [Concomitant]
     Dosage: 200MG TWO TABLETS IN THE MORNING AND ONCE IN THE AFTERNOON
  6. PAXIL [Concomitant]
     Dosage: 60 MG, 1X/DAY (AT NIGHT)
  7. PRAVASTATIN [Concomitant]
     Indication: BLOOD CHOLESTEROL INCREASED
     Dosage: UNK

REACTIONS (2)
  - Neuralgia [Unknown]
  - Hypoaesthesia [Unknown]
